FAERS Safety Report 5479163-5 (Version None)
Quarter: 2007Q4

REPORT INFORMATION
  Report Type: 
  Country: None (occurrence: None)
  Receive Date: 20071008
  Receipt Date: 20071001
  Transmission Date: 20080405
  Serious: Yes (Other)
  Sender: FDA-Public Use
  Company Number: PHEH2006US03510

PATIENT
  Age: 38 Year
  Sex: Female
  Weight: 64.399 kg

DRUGS (9)
  1. ZOMETA [Suspect]
     Indication: BREAST CANCER METASTATIC
     Dosage: UNK,UNK
  2. AREDIA [Suspect]
  3. TAMOXIFEN CITRATE [Concomitant]
  4. OXYCODONE HCL [Concomitant]
     Indication: PAIN
     Dosage: 15 MG, UNK
  5. DANTRIUM [Concomitant]
  6. ARIMIDEX [Concomitant]
  7. DEPAKOTE [Concomitant]
  8. TOPAMAX [Concomitant]
  9. AROMASIN [Concomitant]
     Dosage: 25 MG, UNK

REACTIONS (18)
  - ABSCESS [None]
  - ANXIETY [None]
  - BONE DISORDER [None]
  - DEFORMITY [None]
  - DISCOMFORT [None]
  - EATING DISORDER SYMPTOM [None]
  - EMOTIONAL DISTRESS [None]
  - FACIAL PAIN [None]
  - IMPAIRED HEALING [None]
  - OSTEONECROSIS [None]
  - OVERDOSE [None]
  - PAIN [None]
  - PHYSICAL DISABILITY [None]
  - SENSORY LOSS [None]
  - SINUS DISORDER [None]
  - TENDERNESS [None]
  - TOOTH EXTRACTION [None]
  - TRIGEMINAL NEURALGIA [None]
